FAERS Safety Report 13964560 (Version 4)
Quarter: 2018Q4

REPORT INFORMATION
  Report Type: Report from Study
  Country: AU (occurrence: AU)
  Receive Date: 20170913
  Receipt Date: 20181010
  Transmission Date: 20190204
  Serious: Yes (Death, Life-Threatening, Hospitalization, Other)
  Sender: FDA-Public Use
  Company Number: AU-CELGENEUS-AUS-20170404686

PATIENT
  Age: 67 Year
  Sex: Female
  Weight: 41 kg

DRUGS (41)
  1. MAGNESIUM ASPARTATE [Concomitant]
     Active Substance: MAGNESIUM ASPARTATE
     Dosage: 1000 MILLIGRAM
     Route: 048
     Dates: start: 20170604
  2. OXYCODONE [Concomitant]
     Active Substance: OXYCODONE
     Indication: PNEUMONIA
  3. MYLANTA ALUMINIUM HYDROXIDE WITH MAGNESIUM HYDROXIDE [Concomitant]
     Indication: GASTROOESOPHAGEAL REFLUX DISEASE
     Route: 048
     Dates: start: 20170507, end: 20170514
  4. MYLANTA ALUMINIUM HYDROXIDE WITH MAGNESIUM HYDROXIDE [Concomitant]
     Route: 048
     Dates: start: 20170602, end: 20170602
  5. FEXOFENADINE [Concomitant]
     Active Substance: FEXOFENADINE\FEXOFENADINE HYDROCHLORIDE
     Indication: PLATELET TRANSFUSION
     Dosage: 180 MILLIGRAM
     Route: 048
     Dates: start: 20170601, end: 20170601
  6. POTASSIUM CHLORIDE. [Concomitant]
     Active Substance: POTASSIUM CHLORIDE
     Indication: PNEUMONIA
     Dosage: 1200 MG
     Route: 048
     Dates: start: 20170507, end: 20170605
  7. MAGNESIUM ASPARTATE [Concomitant]
     Active Substance: MAGNESIUM ASPARTATE
     Dosage: 500 MILLIGRAM
     Route: 048
     Dates: start: 20170511, end: 20170516
  8. CITRAZINE [Concomitant]
     Indication: PLATELET TRANSFUSION
     Route: 048
     Dates: start: 20170603
  9. POTASSIUM CHLORIDE. [Concomitant]
     Active Substance: POTASSIUM CHLORIDE
     Indication: PROPHYLAXIS
     Dosage: 4 TABLET
     Route: 048
  10. POTASSIUM CHLORIDE. [Concomitant]
     Active Substance: POTASSIUM CHLORIDE
     Indication: ENTEROCOLITIS
     Dosage: 1200 MG
     Route: 048
     Dates: start: 20170217, end: 20170430
  11. POTASSIUM CHLORIDE. [Concomitant]
     Active Substance: POTASSIUM CHLORIDE
     Dosage: IN 100 ML NORMAL SALINE
     Route: 041
     Dates: start: 20170504, end: 20170505
  12. POTASSIUM CHLORIDE. [Concomitant]
     Active Substance: POTASSIUM CHLORIDE
     Dosage: 3600 MILLIGRAM
     Route: 048
     Dates: start: 20170606, end: 20170617
  13. POTASSIUM CHLORIDE. [Concomitant]
     Active Substance: POTASSIUM CHLORIDE
     Dosage: 2400 MILLIGRAM
     Route: 048
     Dates: start: 20170618
  14. RISEDRONATE [Concomitant]
     Active Substance: RISEDRONATE SODIUM
     Indication: OSTEOPOROSIS
     Dosage: 5 MILLIGRAM
     Route: 065
  15. PARACETAMOL [Concomitant]
     Active Substance: ACETAMINOPHEN
     Indication: LUNG INFECTION
     Route: 048
     Dates: start: 20161218
  16. AMITRIPTYLINE [Concomitant]
     Active Substance: AMITRIPTYLINE
     Indication: INSOMNIA
     Dosage: 25 MILLIGRAM
     Route: 048
     Dates: start: 201702, end: 20170411
  17. AUGMENTIN DUO FORTE [Concomitant]
     Active Substance: AMOXICILLIN\CLAVULANATE POTASSIUM
     Indication: PYREXIA
     Dosage: 2 TABLET
     Route: 048
     Dates: start: 20170417, end: 20170422
  18. RANITIDINE. [Concomitant]
     Active Substance: RANITIDINE
     Indication: GASTROOESOPHAGEAL REFLUX DISEASE
     Dosage: 300 MILLIGRAM
     Route: 048
     Dates: start: 20170514
  19. POSACONAZOLE [Concomitant]
     Active Substance: POSACONAZOLE
     Indication: ANTIFUNGAL PROPHYLAXIS
     Dosage: 300 MILLIGRAM
     Route: 048
     Dates: start: 20170420
  20. CALCIUM COLECALCIFEROL [Concomitant]
     Dosage: 1.2 GRAM
     Route: 048
     Dates: start: 20170504, end: 20170516
  21. POTASSIUM CHLORIDE. [Concomitant]
     Active Substance: POTASSIUM CHLORIDE
     Dosage: IN 100 ML NORMAL SALINE
     Route: 041
     Dates: start: 20170506, end: 20170506
  22. AG-221 [Suspect]
     Active Substance: ENASIDENIB
     Indication: ACUTE MYELOID LEUKAEMIA
     Dosage: 200 MG
     Route: 048
     Dates: start: 20161221, end: 20170508
  23. POTASSIUM CHLORIDE. [Concomitant]
     Active Substance: POTASSIUM CHLORIDE
     Dosage: IN 200 ML IN NORMAL SALINE
     Route: 041
     Dates: start: 20170609, end: 20170609
  24. MAGNESIUM ASPARTATE [Concomitant]
     Active Substance: MAGNESIUM ASPARTATE
     Indication: PROPHYLAXIS
     Dosage: 1500 MILLIGRAM
     Route: 048
     Dates: start: 20170219
  25. MAGNESIUM ASPARTATE [Concomitant]
     Active Substance: MAGNESIUM ASPARTATE
     Dosage: 1500 MILLIGRAM
     Route: 048
     Dates: start: 20170220
  26. TEMAZEPAM. [Concomitant]
     Active Substance: TEMAZEPAM
     Indication: INSOMNIA
     Route: 048
  27. ANUSOL NOS [Concomitant]
     Active Substance: BALSAM PERU\BENZYL BENZOATE\BISMUTH HYDROXIDE\BISMUTH SUBGALLATE\HYDROCORTISONE ACETATE\ZINC OXIDE
     Indication: HAEMORRHOIDS
     Dosage: 2 OTHER
     Route: 061
     Dates: start: 20170208
  28. PANTOPRAZOLE [Concomitant]
     Active Substance: PANTOPRAZOLE
     Indication: GASTRITIS PROPHYLAXIS
     Dosage: 40 MG
     Route: 048
     Dates: start: 201512, end: 20170513
  29. CALCIUM COLECALCIFEROL [Concomitant]
     Indication: OSTEOPOROSIS
     Dosage: 1 TABLET
     Route: 048
     Dates: start: 20161220
  30. POTASSIUM CHLORIDE. [Concomitant]
     Active Substance: POTASSIUM CHLORIDE
     Dosage: 3600 MILLIGRAM
     Route: 048
     Dates: start: 20170507, end: 20170511
  31. POTASSIUM CHLORIDE. [Concomitant]
     Active Substance: POTASSIUM CHLORIDE
     Dosage: IN 800 ML
     Route: 041
     Dates: start: 20170605, end: 20170605
  32. AG-221 [Suspect]
     Active Substance: ENASIDENIB
     Dosage: 100 MILLIGRAM
     Route: 048
     Dates: start: 20170622, end: 20170624
  33. POTASSIUM CHLORIDE. [Concomitant]
     Active Substance: POTASSIUM CHLORIDE
     Dosage: 1200 MILLIGRAM
     Route: 048
     Dates: start: 20170501, end: 20170503
  34. POTASSIUM CHLORIDE. [Concomitant]
     Active Substance: POTASSIUM CHLORIDE
     Dosage: 2400 MILLIGRAM
     Route: 048
     Dates: start: 20170504, end: 20170506
  35. OXYCODONE [Concomitant]
     Active Substance: OXYCODONE
     Indication: BACK PAIN
     Route: 048
     Dates: start: 20170105
  36. FAMCICLOVIR. [Concomitant]
     Active Substance: FAMCICLOVIR
     Indication: ANTIVIRAL PROPHYLAXIS
     Dosage: 1000 MG
     Route: 048
     Dates: start: 201512
  37. VORICONAZOLE. [Concomitant]
     Active Substance: VORICONAZOLE
     Indication: ANTIFUNGAL PROPHYLAXIS
     Dosage: 750 MG
     Route: 048
     Dates: start: 20170407, end: 20170412
  38. POSACONAZOLE [Concomitant]
     Active Substance: POSACONAZOLE
     Dosage: 300 MILLIGRAM
     Route: 048
     Dates: start: 20170509
  39. POTASSIUM CHLORIDE. [Concomitant]
     Active Substance: POTASSIUM CHLORIDE
     Dosage: IN 1000 ML NORMAL SALINE
     Route: 041
     Dates: start: 20170502, end: 20170503
  40. POTASSIUM CHLORIDE. [Concomitant]
     Active Substance: POTASSIUM CHLORIDE
     Dosage: IN 300 ML NORMAL SALINE
     Route: 041
     Dates: start: 20170503, end: 20170505
  41. POTASSIUM CHLORIDE. [Concomitant]
     Active Substance: POTASSIUM CHLORIDE
     Dosage: IN 1000 ML NORMAL SALINE
     Route: 041
     Dates: start: 20170508, end: 20170508

REACTIONS (6)
  - Periorbital cellulitis [Recovered/Resolved]
  - Clostridium difficile colitis [Recovered/Resolved]
  - Pneumonia [Recovered/Resolved]
  - Pneumonia [Recovered/Resolved]
  - Pyrexia [Recovered/Resolved]
  - Pneumonia legionella [Fatal]

NARRATIVE: CASE EVENT DATE: 20170412
